FAERS Safety Report 24794689 (Version 3)
Quarter: 2025Q1

REPORT INFORMATION
  Report Type: Spontaneous
  Country: US (occurrence: US)
  Receive Date: 20241231
  Receipt Date: 20250225
  Transmission Date: 20250408
  Serious: No
  Sender: JOHNSON AND JOHNSON
  Company Number: US-JNJFOC-20241262473

PATIENT
  Age: 44 Year
  Sex: Female

DRUGS (7)
  1. SPRAVATO [Suspect]
     Active Substance: ESKETAMINE
     Indication: Major depression
     Route: 045
     Dates: start: 20241218
  2. SPRAVATO [Suspect]
     Active Substance: ESKETAMINE
     Indication: Depression
  3. TRINTELLIX [Concomitant]
     Active Substance: VORTIOXETINE HYDROBROMIDE
  4. VILAZODONE [Concomitant]
     Active Substance: VILAZODONE
  5. TOPAMAX [Concomitant]
     Active Substance: TOPIRAMATE
  6. XANAX [Concomitant]
     Active Substance: ALPRAZOLAM
  7. HYDROXYZINE [Concomitant]
     Active Substance: HYDROXYZINE HYDROCHLORIDE

REACTIONS (2)
  - Incorrect dose administered by device [Unknown]
  - Device malfunction [Unknown]

NARRATIVE: CASE EVENT DATE: 20241218
